FAERS Safety Report 6088941-3 (Version None)
Quarter: 2009Q1

REPORT INFORMATION
  Report Type: 
  Country: None (occurrence: None)
  Receive Date: 20090224
  Receipt Date: 20090209
  Transmission Date: 20090719
  Serious: No
  Sender: FDA-Public Use
  Company Number: US-BAYER-200910434BCC

PATIENT
  Age: 41 Year
  Sex: Female

DRUGS (1)
  1. ALEVE [Suspect]
     Indication: DRUG USE FOR UNKNOWN INDICATION
     Dates: start: 20090209

REACTIONS (1)
  - NO ADVERSE EVENT [None]
